FAERS Safety Report 8464608-9 (Version None)
Quarter: 2012Q2

REPORT INFORMATION
  Report Type: 
  Country: None (occurrence: None)
  Receive Date: 20120323
  Receipt Date: 20111215
  Transmission Date: 20120825
  Serious: Yes (Other)
  Sender: FDA-Public Use
  Company Number: 163-21880-111111335

PATIENT
  Age: 66 Year
  Sex: Female

DRUGS (26)
  1. RANTIDINE (RANITIDINE HYDROCHLORIDE) [Concomitant]
  2. PROBIOTIC (BIFIDOBACTERIUM LACTIS) [Concomitant]
  3. FIBER PLAN (POLYCARBOPHIL CALCIUM) [Concomitant]
  4. KLOR-CON [Concomitant]
  5. COUMADIN [Concomitant]
  6. VITAMIN B6 [Concomitant]
  7. CARDIZEM [Concomitant]
  8. PROCHLORPERAZINE MALEATE [Concomitant]
  9. LASIX [Concomitant]
  10. FLUTICASONE PROPIONATE [Concomitant]
  11. TRAVATAN [Concomitant]
  12. CALCIUM CITRATE MALATE (OSTONATE) [Concomitant]
  13. OMEGA GUARD (LIPITAC) [Concomitant]
  14. MULTIVITAMIN [Concomitant]
  15. CALCIUM CARBONATE [Concomitant]
  16. PROVENTIL HFA (SALBUTAMOL) [Concomitant]
  17. CHOLESTEROL REDUCTION COMPLEX (CHOLESTEROL) [Concomitant]
  18. PANTOPRAZOLE SODIUM [Concomitant]
  19. TIMOLOL MALEATE [Concomitant]
  20. ZETIA [Concomitant]
  21. FOLIC ACID [Concomitant]
  22. FOSAMAX [Concomitant]
  23. REVLIMID [Suspect]
     Indication: MULTIPLE MYELOMA
     Dosage: 25 MG, DAILY X 21 DAYS, PO
     Route: 048
     Dates: start: 20110511, end: 20111118
  24. VITAMIN B12 [Concomitant]
  25. LORAZEPAM [Concomitant]
  26. DEXAMETHASONE [Concomitant]

REACTIONS (1)
  - LOBAR PNEUMONIA [None]
